FAERS Safety Report 15680540 (Version 1)
Quarter: 2018Q4

REPORT INFORMATION
  Report Type: Spontaneous
  Country: US (occurrence: US)
  Receive Date: 20181202
  Receipt Date: 20181202
  Transmission Date: 20190205
  Serious: Yes (Hospitalization)
  Sender: FDA-Public Use
  Company Number: None

PATIENT
  Age: 69 Year
  Sex: Female

DRUGS (14)
  1. AZELASTINE SPRAY [Concomitant]
  2. RESTASIS [Concomitant]
     Active Substance: CYCLOSPORINE
  3. VITAMIN D3 [Concomitant]
     Active Substance: CHOLECALCIFEROL
  4. POTASSIUM CHLORIDE. [Concomitant]
     Active Substance: POTASSIUM CHLORIDE
  5. IBRANCE [Suspect]
     Active Substance: PALBOCICLIB
     Indication: BREAST CANCER FEMALE
     Dosage: ?          OTHER FREQUENCY:QD DAYS 1-21 Q28D;?
     Route: 048
     Dates: start: 20180925
  6. LETROZOLE. [Concomitant]
     Active Substance: LETROZOLE
  7. FLUTICASONE SPRAY [Concomitant]
     Active Substance: FLUTICASONE
  8. OMEPRAZOLE. [Concomitant]
     Active Substance: OMEPRAZOLE
  9. RHOFADE CREAM [Concomitant]
  10. LEVOFLOXACIN. [Concomitant]
     Active Substance: LEVOFLOXACIN
  11. ATORVASTATIN [Concomitant]
     Active Substance: ATORVASTATIN
  12. ATROVENT HFA [Concomitant]
     Active Substance: IPRATROPIUM BROMIDE
  13. CLARITIN [Concomitant]
     Active Substance: LORATADINE
  14. SODIUM BICARBONATE. [Concomitant]
     Active Substance: SODIUM BICARBONATE

REACTIONS (2)
  - White blood cell count decreased [None]
  - Product dose omission [None]

NARRATIVE: CASE EVENT DATE: 20181127
